FAERS Safety Report 19454375 (Version 1)
Quarter: 2021Q2

REPORT INFORMATION
  Report Type: Report from Study
  Country: US (occurrence: US)
  Receive Date: 20210623
  Receipt Date: 20210623
  Transmission Date: 20210717
  Serious: Yes (Disabling)
  Sender: FDA-Public Use
  Company Number: US-B.I. PHARMACEUTICALS,INC./RIDGEFIELD-2021-BI-085913

PATIENT
  Age: 73 Year
  Sex: Female

DRUGS (2)
  1. OFEV [Suspect]
     Active Substance: NINTEDANIB
     Indication: IDIOPATHIC PULMONARY FIBROSIS
     Dosage: 150MG PO BID
     Route: 048
  2. OFEV [Suspect]
     Active Substance: NINTEDANIB
     Route: 048
     Dates: end: 20210528

REACTIONS (11)
  - Dyspnoea [Not Recovered/Not Resolved]
  - Abdominal discomfort [Recovered/Resolved]
  - Oxygen consumption increased [Unknown]
  - Weight decreased [Unknown]
  - Diarrhoea [Recovered/Resolved]
  - Nausea [Recovered/Resolved]
  - Diarrhoea [Not Recovered/Not Resolved]
  - Nausea [Not Recovered/Not Resolved]
  - Weight decreased [Not Recovered/Not Resolved]
  - Vomiting [Recovered/Resolved]
  - Abdominal discomfort [Not Recovered/Not Resolved]
